FAERS Safety Report 6121254-X (Version None)
Quarter: 2009Q1

REPORT INFORMATION
  Report Type: 
  Country: None (occurrence: None)
  Receive Date: 20090317
  Receipt Date: 20090306
  Transmission Date: 20090719
  Serious: Yes (Hospitalization)
  Sender: FDA-Public Use
  Company Number: IT-ELI_LILLY_AND_COMPANY-IT200903002016

PATIENT
  Sex: Male

DRUGS (6)
  1. HUMALOG [Suspect]
     Indication: DIABETES MELLITUS
     Dates: start: 20080101, end: 20090227
  2. FUROSEMIDE                         /00032601/ [Concomitant]
  3. CARVEDILOL [Concomitant]
  4. ALLOPURINOL [Concomitant]
  5. PRITOR /01421801/ [Concomitant]
  6. REPAGLINIDE [Concomitant]
     Indication: DIABETES MELLITUS
     Dates: start: 20090101, end: 20090227

REACTIONS (3)
  - ALTERED STATE OF CONSCIOUSNESS [None]
  - HYPOGLYCAEMIA [None]
  - MALAISE [None]
